FAERS Safety Report 5759545-4 (Version None)
Quarter: 2008Q2

REPORT INFORMATION
  Report Type: 
  Country: None (occurrence: None)
  Receive Date: 20080605
  Receipt Date: 20080602
  Transmission Date: 20081010
  Serious: Yes (Death)
  Sender: FDA-Public Use
  Company Number: US-AVENTIS-200813361US

PATIENT
  Sex: Male

DRUGS (2)
  1. LOVENOX [Suspect]
     Route: 051
  2. COUMADIN [Concomitant]
     Dosage: DOSE: UNK

REACTIONS (1)
  - DEATH [None]
